FAERS Safety Report 8250051-4 (Version None)
Quarter: 2012Q2

REPORT INFORMATION
  Report Type: 
  Country: None (occurrence: None)
  Receive Date: 20120402
  Receipt Date: 20120327
  Transmission Date: 20120825
  Serious: Yes (Death, Life-Threatening)
  Sender: FDA-Public Use
  Company Number: CA-ASTRAZENECA-2012SE19307

PATIENT
  Age: 43 Year
  Sex: Female

DRUGS (2)
  1. DIPRIVAN [Suspect]
     Dosage: APPROXIMATELY 900MG (100 ML VIAL) OF PROPOFOL OVER 8  MINUTES OF CONTIUOUS ITRAVENOUS INFUSION
     Route: 042
     Dates: start: 20120318
  2. DIPRIVAN [Suspect]
     Route: 042
     Dates: start: 20120318

REACTIONS (2)
  - SHOCK [None]
  - ACCIDENTAL OVERDOSE [None]
